FAERS Safety Report 12211959 (Version 1)
Quarter: 2016Q1

REPORT INFORMATION
  Report Type: Spontaneous
  Country: US (occurrence: US)
  Receive Date: 20160325
  Receipt Date: 20160325
  Transmission Date: 20160526
  Serious: No
  Sender: FDA-Public Use
  Company Number: US-MALLINCKRODT-T201600458

PATIENT
  Age: 21 Year
  Sex: Male
  Weight: 66 kg

DRUGS (5)
  1. VALTREX [Concomitant]
     Active Substance: VALACYCLOVIR HYDROCHLORIDE
  2. NALTREXONE [Suspect]
     Active Substance: NALTREXONE
     Indication: PRODUCT USE ISSUE
     Dosage: 50 MG, QHS
     Route: 048
     Dates: start: 201511
  3. GABAPENTIN. [Concomitant]
     Active Substance: GABAPENTIN
  4. NALTREXONE [Concomitant]
     Active Substance: NALTREXONE
     Indication: OBSESSIVE-COMPULSIVE DISORDER
  5. AUGMENTIN [Concomitant]
     Active Substance: AMOXICILLIN\CLAVULANATE POTASSIUM
     Dosage: 250 MG

REACTIONS (3)
  - Drug ineffective for unapproved indication [Not Recovered/Not Resolved]
  - Insomnia [Not Recovered/Not Resolved]
  - Off label use [Not Recovered/Not Resolved]

NARRATIVE: CASE EVENT DATE: 201511
